FAERS Safety Report 23990561 (Version 1)
Quarter: 2024Q2

REPORT INFORMATION
  Report Type: Spontaneous
  Country: US (occurrence: US)
  Receive Date: 20240619
  Receipt Date: 20240619
  Transmission Date: 20240716
  Serious: Yes (Other)
  Sender: FDA-Public Use
  Company Number: US-CELGENE-USA-20201104578

PATIENT

DRUGS (2)
  1. AZACITIDINE [Suspect]
     Active Substance: AZACITIDINE
     Indication: Peripheral T-cell lymphoma unspecified
     Dosage: FREQUENCY TEXT: DAY 1-14 OF 35 DAYS?300 MG
     Route: 048
  2. ROMIDEPSIN [Suspect]
     Active Substance: ROMIDEPSIN
     Indication: Peripheral T-cell lymphoma unspecified
     Dosage: FREQUENCY TEXT: DAYS 8, 15,22?14 MG/M2
     Route: 042

REACTIONS (3)
  - Epstein-Barr virus infection reactivation [Unknown]
  - Malignant neoplasm progression [Unknown]
  - Off label use [Unknown]
